FAERS Safety Report 5232295-9 (Version None)
Quarter: 2007Q1

REPORT INFORMATION
  Report Type: 
  Country: None (occurrence: None)
  Receive Date: 20070205
  Receipt Date: 20061023
  Transmission Date: 20070707
  Serious: Yes (Death)
  Sender: FDA-Public Use
  Company Number: B0456530A

PATIENT
  Sex: 0

DRUGS (2)
  1. HYCAMTIN [Suspect]
     Indication: EWING'S SARCOMA
     Dosage: .75 MG/M2 / PER DAY / INTRAVENOUS
     Route: 042
  2. CYCLOPHOSPHAMIDE [Suspect]
     Indication: EWING'S SARCOMA
     Dosage: 250 MG/M2 / PER DAY / INTRAVENOUS
     Route: 042

REACTIONS (2)
  - NEUTROPENIA [None]
  - PNEUMONIA FUNGAL [None]
